FAERS Safety Report 14567353 (Version 6)
Quarter: 2018Q2

REPORT INFORMATION
  Report Type: Spontaneous
  Country: US (occurrence: US)
  Receive Date: 20180223
  Receipt Date: 20180524
  Transmission Date: 20180711
  Serious: Yes (Other)
  Sender: FDA-Public Use
  Company Number: US-AUROBINDO-AUR-APL-2018-007648

PATIENT
  Age: 68 Year
  Sex: Female
  Weight: 142 kg

DRUGS (1)
  1. LEVETIRACETAM TABLETS 750 MG [Suspect]
     Active Substance: LEVETIRACETAM
     Indication: SEIZURE
     Dosage: 750 MG TWICE DAILY
     Dates: start: 201801

REACTIONS (6)
  - Arthralgia [Not Recovered/Not Resolved]
  - Abdominal discomfort [Not Recovered/Not Resolved]
  - Rash [Not Recovered/Not Resolved]
  - Tinnitus [Unknown]
  - Coeliac disease [Not Recovered/Not Resolved]
  - Stomatitis [Not Recovered/Not Resolved]
